FAERS Safety Report 8589440-7 (Version None)
Quarter: 2012Q3

REPORT INFORMATION
  Report Type: 
  Country: None (occurrence: None)
  Receive Date: 20120813
  Receipt Date: 20120807
  Transmission Date: 20120928
  Serious: Yes (Other)
  Sender: FDA-Public Use
  Company Number: US-VERTEX PHARMACEUTICALS INC.-AE-2012-006789

PATIENT
  Sex: Male
  Weight: 148 kg

DRUGS (5)
  1. PEGASYS [Concomitant]
     Indication: HEPATITIS C
     Route: 058
     Dates: start: 20120421, end: 20120530
  2. RIBAVIRIN [Concomitant]
     Indication: HEPATITIS C
     Route: 048
     Dates: start: 20120421, end: 20120530
  3. INCIVEK [Suspect]
     Indication: HEPATITIS C
     Route: 048
     Dates: start: 20120421, end: 20120530
  4. RIBAVIRIN [Concomitant]
     Route: 048
     Dates: start: 20120518
  5. RIBAVIRIN [Concomitant]
     Dates: start: 20120515

REACTIONS (10)
  - WHITE BLOOD CELL COUNT DECREASED [None]
  - MUSCLE SPASMS [None]
  - STAPHYLOCOCCAL SKIN INFECTION [None]
  - INFLUENZA LIKE ILLNESS [None]
  - ABDOMINAL DISCOMFORT [None]
  - HEADACHE [None]
  - DECREASED APPETITE [None]
  - NAUSEA [None]
  - DYSPNOEA [None]
  - ANAEMIA [None]
